FAERS Safety Report 5455079-5 (Version None)
Quarter: 2007Q3

REPORT INFORMATION
  Report Type: 
  Country: None (occurrence: None)
  Receive Date: 20070913
  Receipt Date: 20070913
  Transmission Date: 20080115
  Serious: Yes (Hospitalization)
  Sender: FDA-Public Use
  Company Number: None

PATIENT
  Age: 27 Year
  Sex: Female
  Weight: 43.0917 kg

DRUGS (1)
  1. CIPROFLOXACIN HCL [Suspect]
     Indication: URINARY TRACT INFECTION
     Dosage: 250 MG TWICE A DAY PO
     Route: 048
     Dates: start: 20070905, end: 20070907

REACTIONS (5)
  - MYALGIA [None]
  - PAIN IN EXTREMITY [None]
  - RASH [None]
  - TENDON DISORDER [None]
  - TENDONITIS [None]
